FAERS Safety Report 24166439 (Version 1)
Quarter: 2024Q3

REPORT INFORMATION
  Report Type: Report from Study
  Country: US (occurrence: US)
  Receive Date: 20240802
  Receipt Date: 20240802
  Transmission Date: 20241016
  Serious: Yes (Hospitalization, Other)
  Sender: ABBVIE
  Company Number: US-ABBVIE-5861837

PATIENT
  Sex: Female

DRUGS (3)
  1. SKYRIZI [Suspect]
     Active Substance: RISANKIZUMAB-RZAA
     Indication: Psoriatic arthropathy
     Dosage: DOSAGE: 150 MG/ML WEEK 0, STRENGTH: 150MG/ML
     Route: 058
     Dates: start: 20230903, end: 20230903
  2. SKYRIZI [Suspect]
     Active Substance: RISANKIZUMAB-RZAA
     Indication: Psoriasis
     Dosage: DOSAGE: 150 MG/ML WEEK 4, STRENGTH: 150MG/ML
     Route: 058
     Dates: start: 20231001, end: 20231001
  3. SKYRIZI [Suspect]
     Active Substance: RISANKIZUMAB-RZAA
     Dosage: DOSAGE: 150 MG/ML STRENGTH: 150MG/ML, THEN EVERY 12 WEEKS THEREAFTER
     Route: 058

REACTIONS (4)
  - Septic shock [Unknown]
  - Pneumonia [Unknown]
  - Urinary tract infection [Unknown]
  - Fungal infection [Unknown]
